FAERS Safety Report 6071371-8 (Version None)
Quarter: 2009Q1

REPORT INFORMATION
  Report Type: 
  Country: None (occurrence: None)
  Receive Date: 20090204
  Receipt Date: 20090123
  Transmission Date: 20090719
  Serious: Yes (Hospitalization)
  Sender: FDA-Public Use
  Company Number: PAR_02813_2009

PATIENT
  Age: 4 Year
  Sex: Male

DRUGS (1)
  1. CLONAZEPAM [Suspect]
     Indication: DRUG USE FOR UNKNOWN INDICATION
     Dosage: DF

REACTIONS (8)
  - ATAXIA [None]
  - ATRIOVENTRICULAR BLOCK FIRST DEGREE [None]
  - ATRIOVENTRICULAR BLOCK SECOND DEGREE [None]
  - DRUG LEVEL INCREASED [None]
  - DRUG SCREEN POSITIVE [None]
  - MIOSIS [None]
  - RESPIRATORY DEPRESSION [None]
  - UNRESPONSIVE TO STIMULI [None]
